FAERS Safety Report 8571115-1 (Version None)
Quarter: 2012Q3

REPORT INFORMATION
  Report Type: 
  Country: None (occurrence: None)
  Receive Date: 20120806
  Receipt Date: 20120803
  Transmission Date: 20120928
  Serious: No
  Sender: FDA-Public Use
  Company Number: US-PFIZER INC-2012189469

PATIENT
  Age: 29 Year
  Sex: Male
  Weight: 105 kg

DRUGS (2)
  1. EFFEXOR [Suspect]
     Dosage: 75 MG, 3X/DAY
     Route: 048
     Dates: start: 20100101
  2. BUPROPION [Concomitant]
     Dosage: 100MG AND 150MG (WAS ON BOTH THE STRENGTHS AT AN UNKNOWN FREQUENCY)

REACTIONS (1)
  - TREMOR [None]
